FAERS Safety Report 8183388-8 (Version None)
Quarter: 2012Q1

REPORT INFORMATION
  Report Type: 
  Country: None (occurrence: None)
  Receive Date: 20120305
  Receipt Date: 20120229
  Transmission Date: 20120608
  Serious: Yes (Death)
  Sender: FDA-Public Use
  Company Number: JP-PFIZER INC-2012053003

PATIENT
  Age: 25 Year
  Sex: Female
  Weight: 41.4 kg

DRUGS (4)
  1. ROHYPNOL [Suspect]
  2. HALCION [Suspect]
  3. DEPAS [Suspect]
  4. LEXOTAN [Suspect]

REACTIONS (2)
  - COMPLETED SUICIDE [None]
  - INTENTIONAL OVERDOSE [None]
